FAERS Safety Report 9727050 (Version 2)
Quarter: 2013Q4

REPORT INFORMATION
  Report Type: Spontaneous
  Country: US (occurrence: US)
  Receive Date: 20131203
  Receipt Date: 20131206
  Transmission Date: 20140711
  Serious: Yes (Death, Other)
  Sender: FDA-Public Use
  Company Number: US-ASTRAZENECA-2013SE87996

PATIENT
  Age: 275 Day
  Sex: Female
  Weight: 1.8 kg

DRUGS (1)
  1. SYNAGIS [Suspect]
     Dosage: 100 MG/ML, 15 MG/KG MONTHLY
     Route: 030
     Dates: start: 20131122

REACTIONS (2)
  - Death [Fatal]
  - Increased upper airway secretion [Unknown]
